FAERS Safety Report 5366218-9 (Version None)
Quarter: 2007Q2

REPORT INFORMATION
  Report Type: 
  Country: None (occurrence: None)
  Receive Date: 20070619
  Receipt Date: 20070607
  Transmission Date: 20071010
  Serious: Yes (Death)
  Sender: FDA-Public Use
  Company Number: 2007-01018

PATIENT

DRUGS (1)
  1. VELCADE [Suspect]
     Indication: TRANSITIONAL CELL CARCINOMA
     Dosage: 1.30 MG/M2,UNK, IV BOLUS
     Route: 040

REACTIONS (1)
  - DISEASE PROGRESSION [None]
